FAERS Safety Report 14771427 (Version 2)
Quarter: 2018Q2

REPORT INFORMATION
  Report Type: Spontaneous
  Country: JP (occurrence: JP)
  Receive Date: 20180417
  Receipt Date: 20180426
  Transmission Date: 20180711
  Serious: Yes (Other)
  Sender: FDA-Public Use
  Company Number: JP-SHIRE-JP201813566AA

PATIENT
  Age: 64 Year
  Sex: Male
  Weight: 69.4 kg

DRUGS (1)
  1. ADVATE [Suspect]
     Active Substance: ANTIHEMOPHILIC FACTOR, HUMAN RECOMBINANT
     Indication: FACTOR VIII DEFICIENCY
     Dosage: 1000 IU, 2X A WEEK
     Route: 042

REACTIONS (2)
  - Haemarthrosis [Recovered/Resolved]
  - Feeling abnormal [Recovered/Resolved]
